FAERS Safety Report 6602912-7 (Version None)
Quarter: 2010Q1

REPORT INFORMATION
  Report Type: 
  Country: None (occurrence: None)
  Receive Date: 20100219
  Receipt Date: 20070516
  Transmission Date: 20100710
  Serious: Yes (Life-Threatening, Hospitalization)
  Sender: FDA-Public Use
  Company Number: 2009-2567

PATIENT
  Age: 76 Year
  Sex: Female
  Weight: 46.7 kg

DRUGS (10)
  1. APOKYN [Suspect]
     Indication: PARKINSON'S DISEASE
     Dosage: 0.2 ML, VARIED FREQUENCY, SUBCUTANEOUS
     Route: 058
     Dates: start: 20070515
  2. STALEVO (STALEVO) [Concomitant]
  3. REQUIP [Concomitant]
  4. ELAVIL [Concomitant]
  5. LESCOL XL [Concomitant]
  6. ARICEPT [Concomitant]
  7. PREMARIN [Concomitant]
  8. AMBIEN [Concomitant]
  9. LEXAPRO [Concomitant]
  10. BENICAR [Concomitant]

REACTIONS (2)
  - CEREBROVASCULAR ACCIDENT [None]
  - DYSKINESIA [None]
